FAERS Safety Report 11505093 (Version 1)
Quarter: 2015Q3

REPORT INFORMATION
  Report Type: Spontaneous
  Country: US (occurrence: US)
  Receive Date: 20150915
  Receipt Date: 20150915
  Transmission Date: 20151125
  Serious: No
  Sender: FDA-Public Use
  Company Number: US-ROCHE-779046

PATIENT
  Age: 62 Year
  Sex: Female

DRUGS (2)
  1. PEGASYS [Suspect]
     Active Substance: PEGINTERFERON ALFA-2A
     Indication: HEPATITIS C
     Route: 058
  2. COPEGUS [Suspect]
     Active Substance: RIBAVIRIN
     Indication: HEPATITIS C
     Dosage: TAKEN IN DIVIDED DOSES
     Route: 048

REACTIONS (6)
  - White blood cell count decreased [Unknown]
  - Feeling abnormal [Unknown]
  - Photosensitivity reaction [Unknown]
  - Influenza like illness [Unknown]
  - Headache [Unknown]
  - Ocular discomfort [Unknown]

NARRATIVE: CASE EVENT DATE: 20110520
